FAERS Safety Report 11575332 (Version 1)
Quarter: 2015Q3

REPORT INFORMATION
  Report Type: Spontaneous
  Country: US (occurrence: None)
  Receive Date: 20150929
  Receipt Date: 20150929
  Transmission Date: 20151125
  Serious: Yes (Other)
  Sender: FDA-Public Use
  Company Number: None

PATIENT
  Age: 72 Year
  Sex: Female
  Weight: 85.73 kg

DRUGS (1)
  1. MORPHINE SULFATE 2 MG/ML [Suspect]
     Active Substance: MORPHINE SULFATE
     Indication: PROCEDURAL PAIN
     Dosage: 1 MG PRN/ AS NEEDED INTRAVENOUS
     Route: 042
     Dates: start: 20150925

REACTIONS (6)
  - Erythema [None]
  - Administration site pruritus [None]
  - Vasodilatation [None]
  - Urticaria [None]
  - Product container issue [None]
  - Administration site reaction [None]

NARRATIVE: CASE EVENT DATE: 20150925
